FAERS Safety Report 18915460 (Version 13)
Quarter: 2024Q3

REPORT INFORMATION
  Report Type: Report from Study
  Country: US (occurrence: US)
  Receive Date: 20210219
  Receipt Date: 20240925
  Transmission Date: 20241017
  Serious: Yes (Other)
  Sender: GLAXOSMITHKLINE
  Company Number: US-GLAXOSMITHKLINE-US2021AMR047070

PATIENT
  Age: 68 Year
  Sex: Female

DRUGS (7)
  1. NIRAPARIB [Suspect]
     Active Substance: NIRAPARIB
     Indication: Fallopian tube cancer
     Dosage: 200 MG, QD
     Dates: start: 20210201
  2. NIRAPARIB [Suspect]
     Active Substance: NIRAPARIB
     Indication: Ovarian cancer
     Dosage: 100 MG, QD
     Route: 048
  3. NIRAPARIB [Suspect]
     Active Substance: NIRAPARIB
     Dosage: 100 MG, QD
     Dates: start: 20210209
  4. NIRAPARIB [Suspect]
     Active Substance: NIRAPARIB
     Dosage: 100 MG, QD
     Route: 048
     Dates: start: 20210315
  5. NIRAPARIB [Suspect]
     Active Substance: NIRAPARIB
     Dosage: 100 MG, QD
     Route: 048
  6. NIRAPARIB [Suspect]
     Active Substance: NIRAPARIB
     Dosage: 100 MG, QD
     Route: 048
  7. NIRAPARIB [Suspect]
     Active Substance: NIRAPARIB
     Dosage: 100 MG, QD
     Route: 048
     Dates: start: 202104

REACTIONS (27)
  - Thrombocytopenia [Recovered/Resolved]
  - Dementia [Not Recovered/Not Resolved]
  - Hallucination [Not Recovered/Not Resolved]
  - Syncope [Not Recovered/Not Resolved]
  - Nausea [Recovered/Resolved]
  - Dyspepsia [Unknown]
  - Abdominal discomfort [Not Recovered/Not Resolved]
  - Constipation [Recovering/Resolving]
  - Blood pressure increased [Recovered/Resolved]
  - Mobility decreased [Unknown]
  - Memory impairment [Not Recovered/Not Resolved]
  - Fall [Unknown]
  - Joint injury [Unknown]
  - Dizziness [Not Recovered/Not Resolved]
  - Blood pressure diastolic increased [Recovered/Resolved]
  - Pruritus [Recovering/Resolving]
  - Exposure to toxic agent [Recovering/Resolving]
  - Malaise [Unknown]
  - Balance disorder [Recovering/Resolving]
  - Condition aggravated [Recovering/Resolving]
  - Stomatitis [Not Recovered/Not Resolved]
  - Crying [Unknown]
  - Tremor [Unknown]
  - Vertigo [Unknown]
  - Off label use [Unknown]
  - Accidental overdose [Unknown]
  - Product dose omission issue [Unknown]

NARRATIVE: CASE EVENT DATE: 20211001
